FAERS Safety Report 15226637 (Version 1)
Quarter: 2018Q3

REPORT INFORMATION
  Report Type: Spontaneous
  Country: US (occurrence: US)
  Receive Date: 20180801
  Receipt Date: 20180801
  Transmission Date: 20181010
  Serious: No
  Sender: FDA-Public Use
  Company Number: US-ALLERGAN-1811541US

PATIENT
  Sex: Female

DRUGS (1)
  1. BUTALBITAL;ASPIRIN;CAFFEINE UNK [Suspect]
     Active Substance: ASPIRIN\BUTALBITAL\CAFFEINE
     Indication: NECK PAIN
     Dosage: UNK
     Route: 065

REACTIONS (2)
  - Drug ineffective [Unknown]
  - Neck pain [Unknown]
